FAERS Safety Report 5657273-7 (Version None)
Quarter: 2008Q1

REPORT INFORMATION
  Report Type: 
  Country: None (occurrence: None)
  Receive Date: 20080310
  Receipt Date: 20080227
  Transmission Date: 20080703
  Serious: Yes (Hospitalization)
  Sender: FDA-Public Use
  Company Number: JP-PFIZER INC-2008011110

PATIENT
  Age: 88 Year
  Sex: Male

DRUGS (4)
  1. ZITHROMAX [Suspect]
     Indication: UPPER RESPIRATORY TRACT INFLAMMATION
     Dosage: DAILY DOSE:500MG
     Route: 048
     Dates: start: 20080122, end: 20080124
  2. RESPLEN [Concomitant]
  3. ALLELOCK [Concomitant]
  4. ANTIHYPERTENSIVES [Concomitant]

REACTIONS (3)
  - AMNESIA [None]
  - DRUG INEFFECTIVE [None]
  - PNEUMONIA ASPIRATION [None]
